FAERS Safety Report 5816420-4 (Version None)
Quarter: 2008Q3

REPORT INFORMATION
  Report Type: 
  Country: None (occurrence: None)
  Receive Date: 20080721
  Receipt Date: 20080402
  Transmission Date: 20090109
  Serious: No
  Sender: FDA-Public Use
  Company Number: US-BAUSCH-2008BL001504

PATIENT
  Age: 50 Year
  Sex: Female

DRUGS (2)
  1. OPCON-A [Suspect]
     Dates: start: 20080401, end: 20080401
  2. OPCON-A [Suspect]
     Indication: EYE PRURITUS
     Dates: start: 20080401, end: 20080401

REACTIONS (1)
  - SKIN INJURY [None]
